FAERS Safety Report 23127514 (Version 1)
Quarter: 2023Q4

REPORT INFORMATION
  Report Type: Spontaneous
  Country: DE (occurrence: DE)
  Receive Date: 20231031
  Receipt Date: 20231031
  Transmission Date: 20240110
  Serious: Yes (Other)
  Sender: FDA-Public Use
  Company Number: DE-JAZZ PHARMACEUTICALS-2023-DE-021600

PATIENT

DRUGS (4)
  1. EPIDIOLEX [Suspect]
     Active Substance: CANNABIDIOL
     Indication: Lennox-Gastaut syndrome
     Dosage: UNK
  2. CENOBAMATE [Suspect]
     Active Substance: CENOBAMATE
     Indication: Lennox-Gastaut syndrome
     Dosage: UNK
  3. BRIVARACETAM [Suspect]
     Active Substance: BRIVARACETAM
     Indication: Lennox-Gastaut syndrome
  4. CLOBAZAM [Suspect]
     Active Substance: CLOBAZAM
     Indication: Lennox-Gastaut syndrome
     Dosage: UNK

REACTIONS (2)
  - Seizure [Unknown]
  - Multiple-drug resistance [Unknown]

NARRATIVE: CASE EVENT DATE: 20230101
